FAERS Safety Report 6118155-X (Version None)
Quarter: 2009Q1

REPORT INFORMATION
  Report Type: 
  Country: None (occurrence: None)
  Receive Date: 20090314
  Receipt Date: 20090206
  Transmission Date: 20090719
  Serious: No
  Sender: FDA-Public Use
  Company Number: US-ABBOTT-09P-163-0502160-00

PATIENT
  Sex: Female
  Weight: 77.18 kg

DRUGS (6)
  1. HUMIRA [Suspect]
     Indication: RHEUMATOID ARTHRITIS
     Dosage: NO LOADING DOSE GIVEN
     Route: 058
     Dates: start: 20090116, end: 20090116
  2. CELEBREX [Concomitant]
     Indication: RHEUMATOID ARTHRITIS
     Route: 048
  3. PREVACID [Concomitant]
     Indication: GASTROOESOPHAGEAL REFLUX DISEASE
     Route: 048
  4. URSO FORTE [Concomitant]
     Indication: BILIARY CIRRHOSIS PRIMARY
     Route: 048
  5. RIFAMPIN [Concomitant]
     Indication: BILIARY CIRRHOSIS PRIMARY
     Route: 048
  6. AMBIEN [Concomitant]
     Indication: INSOMNIA

REACTIONS (6)
  - CHEST PAIN [None]
  - INJECTION SITE ERYTHEMA [None]
  - INJECTION SITE HAEMATOMA [None]
  - OCULAR HYPERAEMIA [None]
  - PRURITUS [None]
  - RASH [None]
